FAERS Safety Report 12988137 (Version 2)
Quarter: 2016Q4

REPORT INFORMATION
  Report Type: Report from Study
  Country: US (occurrence: US)
  Receive Date: 20161130
  Receipt Date: 20161225
  Transmission Date: 20170207
  Serious: Yes (Hospitalization, Other)
  Sender: FDA-Public Use
  Company Number: US-AMGEN-USASL2016166879

PATIENT
  Age: 46 Year
  Sex: Male

DRUGS (1)
  1. ENBREL [Suspect]
     Active Substance: ETANERCEPT
     Indication: ANKYLOSING SPONDYLITIS
     Dosage: 50 MG, QWK
     Route: 065

REACTIONS (8)
  - Headache [Unknown]
  - Oedema peripheral [Unknown]
  - Aspiration pleural cavity [Unknown]
  - Pneumonia [Unknown]
  - Pain [Unknown]
  - Musculoskeletal chest pain [Not Recovered/Not Resolved]
  - Pelvic pain [Unknown]
  - Arthralgia [Unknown]
